FAERS Safety Report 7700420-3 (Version None)
Quarter: 2011Q3

REPORT INFORMATION
  Report Type: 
  Country: None (occurrence: None)
  Receive Date: 20110822
  Receipt Date: 20110808
  Transmission Date: 20111222
  Serious: Yes (Death)
  Sender: FDA-Public Use
  Company Number: CO-ELI_LILLY_AND_COMPANY-CO201107006372

PATIENT
  Age: 82 Year
  Sex: Female

DRUGS (2)
  1. CALCIUM W/VITAMIN D                /00188401/ [Concomitant]
     Indication: SUPPLEMENTATION THERAPY
  2. FORTEO [Suspect]
     Indication: OSTEOPOROSIS
     Dosage: 20 UG, QD
     Route: 058
     Dates: start: 20091201, end: 20110201

REACTIONS (1)
  - CARDIAC DISORDER [None]
